FAERS Safety Report 10532379 (Version 1)
Quarter: 2014Q4

REPORT INFORMATION
  Report Type: Spontaneous
  Country: US (occurrence: US)
  Receive Date: 20141021
  Receipt Date: 20141021
  Transmission Date: 20150529
  Serious: No
  Sender: FDA-Public Use
  Company Number: US-PURDUE-USA-2014-0115774

PATIENT
  Age: 49 Year
  Sex: Female

DRUGS (1)
  1. OXYCONTIN [Suspect]
     Active Substance: OXYCODONE HYDROCHLORIDE
     Indication: HEADACHE
     Dosage: 10 MG, Q12H
     Route: 048
     Dates: start: 20140714, end: 20140714

REACTIONS (2)
  - Abdominal distension [Unknown]
  - Pain [Unknown]

NARRATIVE: CASE EVENT DATE: 20140714
